FAERS Safety Report 26204151 (Version 1)
Quarter: 2025Q4

REPORT INFORMATION
  Report Type: Spontaneous
  Country: US (occurrence: US)
  Receive Date: 20251226
  Receipt Date: 20251226
  Transmission Date: 20260118
  Serious: No
  Sender: GLAXOSMITHKLINE
  Company Number: US-GSK-US2025163529

PATIENT
  Sex: Female

DRUGS (1)
  1. MEPRON [Suspect]
     Active Substance: ATOVAQUONE
     Indication: Babesiosis
     Dosage: QD,4 TEASPOONFULS BY MOUTH DAILY IS NORMAL DOSE

REACTIONS (3)
  - Illness [Unknown]
  - Intentional underdose [Unknown]
  - Off label use [Unknown]
